FAERS Safety Report 18333682 (Version 3)
Quarter: 2021Q3

REPORT INFORMATION
  Report Type: Spontaneous
  Country: US (occurrence: US)
  Receive Date: 20201001
  Receipt Date: 20210823
  Transmission Date: 20211014
  Serious: Yes (Hospitalization, Other)
  Sender: FDA-Public Use
  Company Number: US-ASTRAZENECA-2020SF25269

PATIENT
  Age: 20296 Day
  Sex: Female
  Weight: 105.2 kg

DRUGS (63)
  1. FARXIGA [Suspect]
     Active Substance: DAPAGLIFLOZIN PROPANEDIOL
     Indication: TYPE 2 DIABETES MELLITUS
     Route: 048
     Dates: start: 20160716, end: 201704
  2. FARXIGA [Suspect]
     Active Substance: DAPAGLIFLOZIN PROPANEDIOL
     Indication: WEIGHT DECREASED
     Route: 048
     Dates: start: 20160716, end: 201704
  3. CRYSTALLOID [Concomitant]
     Active Substance: UNSPECIFIED INGREDIENT
  4. HYDROCHLOROTHIAZIDE. [Concomitant]
     Active Substance: HYDROCHLOROTHIAZIDE
  5. PENICILLIN [Concomitant]
     Active Substance: PENICILLIN
  6. LYRICA [Concomitant]
     Active Substance: PREGABALIN
  7. CIPROFLOXACIN. [Concomitant]
     Active Substance: CIPROFLOXACIN
  8. LEVEMIR [Concomitant]
     Active Substance: INSULIN DETEMIR
  9. BUPROPION HYDROCHLORIDE. [Concomitant]
     Active Substance: BUPROPION HYDROCHLORIDE
  10. CYCLOBENZAPRINE. [Concomitant]
     Active Substance: CYCLOBENZAPRINE
  11. LOVENOX [Concomitant]
     Active Substance: ENOXAPARIN SODIUM
  12. SULBACTAM [Concomitant]
     Active Substance: SULBACTAM
  13. OXYCODONE [Concomitant]
     Active Substance: OXYCODONE
  14. LEVOTHYROXINE. [Concomitant]
     Active Substance: LEVOTHYROXINE
  15. METOCLOPRAMIDE. [Concomitant]
     Active Substance: METOCLOPRAMIDE
  16. OLODATEROL HYDROCHLORIDE [Concomitant]
     Active Substance: OLODATEROL HYDROCHLORIDE
  17. CEFTRIAXONE. [Concomitant]
     Active Substance: CEFTRIAXONE
  18. SENNA [Concomitant]
     Active Substance: SENNA LEAF\SENNOSIDES\SENNOSIDES A AND B
  19. MILK OF MAGNESIA [Concomitant]
     Active Substance: MAGNESIUM HYDROXIDE
  20. DILAUDID [Concomitant]
     Active Substance: HYDROMORPHONE HYDROCHLORIDE
  21. LANTUS [Concomitant]
     Active Substance: INSULIN GLARGINE
  22. CEFDINIR. [Concomitant]
     Active Substance: CEFDINIR
  23. DIAZEPAM. [Concomitant]
     Active Substance: DIAZEPAM
  24. AMLODIPINE BESYLATE. [Concomitant]
     Active Substance: AMLODIPINE BESYLATE
  25. METOPROLOL TARTRATE. [Concomitant]
     Active Substance: METOPROLOL TARTRATE
  26. MAGNESIUM SULPHATE [Concomitant]
     Active Substance: MAGNESIUM SULFATE
  27. CEFEPIME [Concomitant]
     Active Substance: CEFEPIME HYDROCHLORIDE
  28. CLOBETASOL [Concomitant]
     Active Substance: CLOBETASOL
  29. THERAMILL [Concomitant]
  30. MICONAZOLE. [Concomitant]
     Active Substance: MICONAZOLE
  31. LOSARTAN POTASSIUM. [Concomitant]
     Active Substance: LOSARTAN POTASSIUM
  32. LISINOPRIL. [Concomitant]
     Active Substance: LISINOPRIL
  33. MAGNESIUM [Concomitant]
     Active Substance: MAGNESIUM
  34. AMIKACIN. [Concomitant]
     Active Substance: AMIKACIN
  35. ESCITALOPRAM OXALATE. [Concomitant]
     Active Substance: ESCITALOPRAM OXALATE
  36. ATORVASTATIN CALCIUM. [Concomitant]
     Active Substance: ATORVASTATIN CALCIUM
  37. AMOX/K CLAV [Concomitant]
     Active Substance: AMOXICILLIN\CLAVULANATE POTASSIUM
  38. NORCO [Concomitant]
     Active Substance: ACETAMINOPHEN\HYDROCODONE BITARTRATE
  39. SULFA [Concomitant]
     Active Substance: UNSPECIFIED INGREDIENT
  40. SULFAMETHOXAZOLE [Concomitant]
     Active Substance: SULFAMETHOXAZOLE
  41. FLUTICASONE. [Concomitant]
     Active Substance: FLUTICASONE
  42. MYLANTA [Concomitant]
     Active Substance: ALUMINUM HYDROXIDE\DIMETHICONE\MAGNESIUM HYDROXIDE
  43. HYDROCODONE/PARACETAMOL [Concomitant]
     Active Substance: ACETAMINOPHEN\HYDROCODONE BITARTRATE
  44. NAPROXEN. [Concomitant]
     Active Substance: NAPROXEN
  45. OXYCODONE [Concomitant]
     Active Substance: OXYCODONE
  46. FARXIGA [Suspect]
     Active Substance: DAPAGLIFLOZIN PROPANEDIOL
     Indication: HYPOTENSION
     Route: 048
     Dates: start: 20160716, end: 201704
  47. CLOTRIMAZOLE. [Concomitant]
     Active Substance: CLOTRIMAZOLE
  48. HUMALOG [Concomitant]
     Active Substance: INSULIN LISPRO
  49. ERTAPENEM. [Concomitant]
     Active Substance: ERTAPENEM SODIUM
  50. TRAMADOL. [Concomitant]
     Active Substance: TRAMADOL
  51. FENTANYL. [Concomitant]
     Active Substance: FENTANYL
  52. GLUCAGON. [Concomitant]
     Active Substance: GLUCAGON
  53. AZTREONAM. [Concomitant]
     Active Substance: AZTREONAM
  54. FLUVIRIN NOS [Concomitant]
     Active Substance: INFLUENZA VIRUS VACCINE
  55. MEROPENEM. [Concomitant]
     Active Substance: MEROPENEM
  56. POTASSIUM [Concomitant]
     Active Substance: POTASSIUM
  57. VANCOMYCIN [Concomitant]
     Active Substance: VANCOMYCIN
  58. VALACYCLOVIR [Concomitant]
     Active Substance: VALACYCLOVIR HYDROCHLORIDE
  59. DOXYCYCLINE HYCLATE. [Concomitant]
     Active Substance: DOXYCYCLINE HYCLATE
  60. METFORMIN [Concomitant]
     Active Substance: METFORMIN HYDROCHLORIDE
  61. BYDUREON [Concomitant]
     Active Substance: EXENATIDE
  62. GLUCOSE [Concomitant]
     Active Substance: DEXTROSE
  63. DIFLUCAN [Concomitant]
     Active Substance: FLUCONAZOLE

REACTIONS (10)
  - Fournier^s gangrene [Unknown]
  - Wound [Unknown]
  - Staphylococcal infection [Unknown]
  - Pain [Unknown]
  - Scar [Unknown]
  - Abscess limb [Unknown]
  - Abdominal abscess [Unknown]
  - Necrotising fasciitis [Unknown]
  - Nerve injury [Unknown]
  - Cellulitis gangrenous [Unknown]

NARRATIVE: CASE EVENT DATE: 20170409
